FAERS Safety Report 23531517 (Version 1)
Quarter: 2024Q1

REPORT INFORMATION
  Report Type: Spontaneous
  Country: US (occurrence: None)
  Receive Date: 20240215
  Receipt Date: 20240215
  Transmission Date: 20240410
  Serious: Yes (Other)
  Sender: FDA-Public Use
  Company Number: None

PATIENT
  Age: 62 Year
  Sex: Male
  Weight: 90 kg

DRUGS (4)
  1. JARDIANCE [Suspect]
     Active Substance: EMPAGLIFLOZIN
     Indication: Cardiac failure
     Dosage: 90 TABLETS DAILY ORAL
     Route: 048
     Dates: start: 20240209, end: 20240212
  2. HYDROCORTISONE [Concomitant]
     Active Substance: HYDROCORTISONE
  3. Entresteo [Concomitant]
  4. COREG [Concomitant]
     Active Substance: CARVEDILOL

REACTIONS (7)
  - Blood pressure inadequately controlled [None]
  - Swelling [None]
  - Neck pain [None]
  - Oropharyngeal pain [None]
  - Upper respiratory tract infection [None]
  - Therapy cessation [None]
  - Blood potassium increased [None]

NARRATIVE: CASE EVENT DATE: 20240209
